FAERS Safety Report 25177999 (Version 1)
Quarter: 2025Q2

REPORT INFORMATION
  Report Type: Other
  Country: JP (occurrence: JP)
  Receive Date: 20250409
  Receipt Date: 20250409
  Transmission Date: 20250716
  Serious: Yes (Hospitalization, Other)
  Sender: EMD SERONO INC
  Company Number: JP-Merck Healthcare KGaA-2025016897

PATIENT
  Age: 84 Year
  Sex: Female

DRUGS (4)
  1. METFORMIN HYDROCHLORIDE [Suspect]
     Active Substance: METFORMIN HYDROCHLORIDE
     Indication: Type 2 diabetes mellitus
     Dates: start: 202404
  2. IMEGLIMIN HYDROCHLORIDE [Suspect]
     Active Substance: IMEGLIMIN HYDROCHLORIDE
     Indication: Type 2 diabetes mellitus
     Dates: start: 202405
  3. JARDIANCE [Suspect]
     Active Substance: EMPAGLIFLOZIN
     Indication: Type 2 diabetes mellitus
  4. LINAGLIPTIN [Concomitant]
     Active Substance: LINAGLIPTIN
     Indication: Type 2 diabetes mellitus

REACTIONS (4)
  - Euglycaemic diabetic ketoacidosis [Recovering/Resolving]
  - Lactic acidosis [Recovering/Resolving]
  - Decreased appetite [Recovering/Resolving]
  - Vomiting [Recovering/Resolving]

NARRATIVE: CASE EVENT DATE: 20240501
